FAERS Safety Report 11319242 (Version 3)
Quarter: 2015Q3

REPORT INFORMATION
  Report Type: Spontaneous
  Country: US (occurrence: US)
  Receive Date: 20150729
  Receipt Date: 20150904
  Transmission Date: 20151125
  Serious: Yes (Other)
  Sender: FDA-Public Use
  Company Number: US-ACTELION PHARMACEUTICALS US, INC.-A-US2015-118493

PATIENT
  Age: 72 Year
  Sex: Female

DRUGS (4)
  1. FUROSEMIDE. [Concomitant]
     Active Substance: FUROSEMIDE
  2. RIOCIGUAT [Concomitant]
     Active Substance: RIOCIGUAT
  3. XARELTO [Concomitant]
     Active Substance: RIVAROXABAN
  4. OPSUMIT [Suspect]
     Active Substance: MACITENTAN
     Indication: PULMONARY ARTERIAL HYPERTENSION
     Dosage: 10 MG, QD
     Route: 048
     Dates: start: 20150311

REACTIONS (13)
  - Oedema peripheral [Recovering/Resolving]
  - Hypotension [Unknown]
  - Peripheral coldness [Unknown]
  - Chest discomfort [Unknown]
  - Deafness bilateral [Unknown]
  - Dyspepsia [Unknown]
  - Oedema [Unknown]
  - Fatigue [Unknown]
  - Cough [Unknown]
  - Feeling cold [Unknown]
  - Dizziness [Unknown]
  - Weight increased [Recovering/Resolving]
  - Chest pain [Unknown]
